FAERS Safety Report 8457779 (Version 2)
Quarter: 2013Q2

REPORT INFORMATION
  Report Type: Spontaneous
  Country: US (occurrence: None)
  Receive Date: 20120227
  Receipt Date: 20120525
  Transmission Date: 20140414
  Serious: Yes (Hospitalization)
  Sender: FDA-Public Use
  Company Number: 340966

PATIENT
  Age: 74 Year
  Sex: Male
  Weight: 108.4 kg

DRUGS (3)
  1. VICTOZA [Suspect]
     Indication: PRODUCT USED FOR UNKNOWN INDICATION
     Dosage: 1.8 MG, QD, SUBCUTANEOUS
     Route: 058
     Dates: start: 20110317, end: 20111014
  2. LANTUS [Concomitant]
  3. STARLIX [Concomitant]

REACTIONS (1)
  - PANCREATITIS ACUTE [None]
